FAERS Safety Report 4545284-4 (Version None)
Quarter: 2004Q4

REPORT INFORMATION
  Report Type: 
  Country: None (occurrence: None)
  Receive Date: 20041222
  Receipt Date: 20040616
  Transmission Date: 20050328
  Serious: Yes (Hospitalization)
  Sender: FDA-Public Use
  Company Number: USA040670395

PATIENT
  Age: 19 Year
  Sex: Male

DRUGS (3)
  1. HUMALOG-HUMA INSULIN (RDNA) :25% LISPRO, 75% NPL (LI [Suspect]
     Indication: DIABETES MELLITUS
     Dosage: 65 U DAY
  2. HUMALOG [Suspect]
     Indication: DIABETES MELLITUS
  3. ALTACE [Concomitant]

REACTIONS (1)
  - HYPERGLYCAEMIA [None]
